FAERS Safety Report 17949663 (Version 3)
Quarter: 2020Q3

REPORT INFORMATION
  Report Type: Report from Study
  Country: None (occurrence: CH)
  Receive Date: 20200625
  Receipt Date: 20200728
  Transmission Date: 20201103
  Serious: Yes (Hospitalization)
  Sender: FDA-Public Use
  Company Number: CH-ABBVIE-20K-151-3458200-00

PATIENT
  Age: 56 Year
  Sex: Female

DRUGS (4)
  1. DUODOPA [Suspect]
     Active Substance: CARBIDOPA\LEVODOPA
     Indication: PARKINSON^S DISEASE
     Route: 050
     Dates: start: 20170321, end: 20190702
  2. DUODOPA [Suspect]
     Active Substance: CARBIDOPA\LEVODOPA
     Dosage: MD: 3.2 ML, CRD: 4 ML/H, CRN: 2 ML/H, ED: 1 ML 24 H THERAPY
     Route: 050
     Dates: start: 20200508
  3. TEMESTA [Concomitant]
     Indication: PRODUCT USED FOR UNKNOWN INDICATION
  4. DUODOPA [Suspect]
     Active Substance: CARBIDOPA\LEVODOPA
     Dosage: MD: 3 ML, CRD: 3.4 ML/H, CRN: 1.4 ML/H, ED: 1 ML 24 H THERAPY
     Route: 050
     Dates: start: 20190702, end: 20200508

REACTIONS (4)
  - Choking [Recovered/Resolved]
  - Akinesia [Unknown]
  - Tremor [Unknown]
  - Fatigue [Recovering/Resolving]

NARRATIVE: CASE EVENT DATE: 20200623
